FAERS Safety Report 5907628-8 (Version None)
Quarter: 2008Q3

REPORT INFORMATION
  Report Type: 
  Country: None (occurrence: None)
  Receive Date: 20080929
  Receipt Date: 20080911
  Transmission Date: 20090109
  Serious: Yes (Hospitalization)
  Sender: FDA-Public Use
  Company Number: 2007BI016046

PATIENT
  Age: 56 Year
  Sex: Female

DRUGS (14)
  1. AVONEX [Suspect]
     Indication: RELAPSING-REMITTING MULTIPLE SCLEROSIS
     Dosage: 15 UG QW IM; 20 UG QW IM; 15 UG QW IM
     Route: 030
     Dates: start: 20070626, end: 20070702
  2. AVONEX [Suspect]
     Indication: RELAPSING-REMITTING MULTIPLE SCLEROSIS
     Dosage: 15 UG QW IM; 20 UG QW IM; 15 UG QW IM
     Route: 030
     Dates: start: 20070703, end: 20070709
  3. AVONEX [Suspect]
     Indication: RELAPSING-REMITTING MULTIPLE SCLEROSIS
     Dosage: 15 UG QW IM; 20 UG QW IM; 15 UG QW IM
     Route: 030
     Dates: start: 20070710
  4. TERNELIN [Concomitant]
  5. CYANOCOBALAMIN [Concomitant]
  6. MOBIC [Concomitant]
  7. PRAVASTATIN SODIUM [Concomitant]
  8. DEPAKENE [Concomitant]
  9. LANDSEN [Concomitant]
  10. SELBEX [Concomitant]
  11. MAGMITT [Concomitant]
  12. GABAPEN [Concomitant]
  13. LOXONIN [Concomitant]
  14. MUCOSTA [Concomitant]

REACTIONS (9)
  - ANAEMIA [None]
  - DEPRESSIVE SYMPTOM [None]
  - GASTRIC ULCER [None]
  - HEADACHE [None]
  - HYPERLIPIDAEMIA [None]
  - HYPOPROTEINAEMIA [None]
  - MULTIPLE SCLEROSIS RELAPSE [None]
  - NEUTROPHIL COUNT INCREASED [None]
  - PYREXIA [None]
